FAERS Safety Report 4836356-5 (Version None)
Quarter: 2005Q4

REPORT INFORMATION
  Report Type: 
  Country: None (occurrence: None)
  Receive Date: 20051121
  Receipt Date: 20051121
  Transmission Date: 20060501
  Serious: Yes (Life-Threatening)
  Sender: FDA-Public Use
  Company Number: None

PATIENT
  Age: 50 Year
  Sex: Male
  Weight: 142.8831 kg

DRUGS (1)
  1. ADVAIR DISKUS 100/50 [Suspect]
     Indication: WHEEZING
     Dosage: ONCE PER DAY   INHAL
     Route: 055
     Dates: start: 20050608, end: 20050615

REACTIONS (3)
  - DYSPNOEA EXERTIONAL [None]
  - INCORRECT DOSE ADMINISTERED [None]
  - OVERDOSE [None]
